FAERS Safety Report 5147417-8 (Version None)
Quarter: 2006Q4

REPORT INFORMATION
  Report Type: 
  Country: None (occurrence: None)
  Receive Date: 20061109
  Receipt Date: 20061030
  Transmission Date: 20070319
  Serious: Yes (Death)
  Sender: FDA-Public Use
  Company Number: US-ABBOTT-06P-163-0349490-00

PATIENT
  Age: 39 Year

DRUGS (13)
  1. HYDROCODONE [Suspect]
     Indication: DRUG USE FOR UNKNOWN INDICATION
     Dosage: INGESTION
     Route: 048
  2. HYDROCODONE [Suspect]
     Route: 051
  3. HYDROCODONE [Suspect]
     Route: 065
  4. DIAZEPAM [Suspect]
     Indication: DRUG USE FOR UNKNOWN INDICATION
     Dosage: INGESTION
     Route: 048
  5. DIAZEPAM [Suspect]
     Route: 051
  6. DIAZEPAM [Suspect]
     Route: 065
  7. DIAZEPAM [Suspect]
  8. DESIPRAMINE HCL [Suspect]
     Indication: DRUG USE FOR UNKNOWN INDICATION
     Dosage: INGESTION
     Route: 048
  9. DESIPRAMINE HCL [Suspect]
     Route: 051
  10. DESIPRAMINE HCL [Suspect]
     Route: 065
  11. ADDITIONAL SUBSTANCES NOT LISTED [Suspect]
     Indication: DRUG USE FOR UNKNOWN INDICATION
     Dosage: INGESTION
     Route: 048
  12. ADDITIONAL SUBSTANCES NOT LISTED [Suspect]
     Route: 051
  13. ADDITIONAL SUBSTANCES NOT LISTED [Suspect]
     Route: 065

REACTIONS (4)
  - CARDIAC ARREST [None]
  - CARDIO-RESPIRATORY ARREST [None]
  - COMPLETED SUICIDE [None]
  - RESPIRATORY ARREST [None]
